FAERS Safety Report 21267743 (Version 2)
Quarter: 2023Q2

REPORT INFORMATION
  Report Type: Spontaneous
  Country: ES (occurrence: ES)
  Receive Date: 20220829
  Receipt Date: 20230407
  Transmission Date: 20230721
  Serious: Yes (Hospitalization)
  Sender: FDA-Public Use
  Company Number: ES-NOVOPROD-938302

PATIENT
  Age: 75 Year
  Sex: Male

DRUGS (7)
  1. CLOPIDOGREL [Interacting]
     Active Substance: CLOPIDOGREL BISULFATE
     Indication: Diabetes mellitus
     Dosage: UNK UNK, QD
     Route: 065
  2. REPAGLINIDE [Interacting]
     Active Substance: REPAGLINIDE
     Indication: Diabetes mellitus
     Dosage: Q3D
     Route: 065
  3. METFORMIN [Suspect]
     Active Substance: METFORMIN HYDROCHLORIDE
     Indication: Cerebrovascular accident
     Dosage: 1700 MILLIGRAM, QD, 850 MG, BID
     Route: 065
     Dates: start: 2018
  4. PANTOPRAZOLE [Suspect]
     Active Substance: PANTOPRAZOLE
     Indication: Prophylaxis against gastrointestinal ulcer
     Dosage: UNK, Q2D
     Route: 065
     Dates: start: 202005
  5. PREDNISONE [Suspect]
     Active Substance: PREDNISONE
     Indication: Gastrointestinal inflammation
     Dosage: 0.5 DOSAGE FORM, Q2D
     Route: 065
     Dates: start: 202005
  6. REPAGLINIDE [Interacting]
     Active Substance: REPAGLINIDE
     Indication: Product used for unknown indication
     Dosage: UNK, UNK (DOSE OF REPAGLINIDE)
     Route: 065
  7. REPAGLINIDE [Interacting]
     Active Substance: REPAGLINIDE
     Dosage: UNK
     Route: 065

REACTIONS (7)
  - Anal incontinence [Recovering/Resolving]
  - Flatulence [Unknown]
  - Diarrhoea [Recovering/Resolving]
  - Abdominal pain [Recovering/Resolving]
  - Drug interaction [Unknown]
  - Glycosylated haemoglobin increased [Unknown]
  - Blood triglycerides increased [Unknown]
